FAERS Safety Report 8812612 (Version 1)
Quarter: 2012Q4

REPORT INFORMATION
  Report Type: 
  Country: US (occurrence: US)
  Receive Date: 20120927
  Receipt Date: 20120927
  Transmission Date: 20130627
  Serious: Yes (Other)
  Sender: FDA-Public Use
  Company Number: PHEH2012US018682

PATIENT
  Sex: Female

DRUGS (1)
  1. FOCALIN [Suspect]
     Dosage: UNK UKN, UNK
     Dates: start: 201102

REACTIONS (2)
  - Weight increased [Unknown]
  - Gastric disorder [Unknown]
